FAERS Safety Report 16256839 (Version 1)
Quarter: 2019Q2

REPORT INFORMATION
  Report Type: Spontaneous
  Country: US (occurrence: US)
  Receive Date: 20190327
  Receipt Date: 20190327
  Transmission Date: 20190711
  Serious: No
  Sender: FDA-Public Use
  Company Number: None

PATIENT
  Age: 46 Year
  Sex: Female

DRUGS (2)
  1. LIDOCAINE HCL INJECTION [Suspect]
     Active Substance: LIDOCAINE HYDROCHLORIDE
     Route: 058
  2. LIDOCAINE HCL INJECTION [Suspect]
     Active Substance: LIDOCAINE HYDROCHLORIDE
     Route: 042

REACTIONS (2)
  - Product label issue [None]
  - Incorrect route of product administration [None]
